FAERS Safety Report 11080321 (Version 2)
Quarter: 2015Q2

REPORT INFORMATION
  Report Type: Spontaneous
  Country: US (occurrence: US)
  Receive Date: 20150430
  Receipt Date: 20150624
  Transmission Date: 20150821
  Serious: Yes (Death, Hospitalization, Other)
  Sender: FDA-Public Use
  Company Number: US-GLAXOSMITHKLINE-US2015057031

PATIENT
  Age: 76 Year
  Sex: Female

DRUGS (5)
  1. MEKINIST [Suspect]
     Active Substance: TRAMETINIB DIMETHYL SULFOXIDE
     Indication: CERVIX CARCINOMA
     Dosage: 2 MG
     Dates: start: 20150310, end: 20150423
  2. MEKINIST [Suspect]
     Active Substance: TRAMETINIB DIMETHYL SULFOXIDE
     Indication: METASTASIS
  3. TRIAMTERENE. [Concomitant]
     Active Substance: TRIAMTERENE
  4. FUROSEMIDE. [Concomitant]
     Active Substance: FUROSEMIDE
  5. MEKINIST [Suspect]
     Active Substance: TRAMETINIB DIMETHYL SULFOXIDE
     Indication: OVARIAN CANCER

REACTIONS (8)
  - Acne [Recovering/Resolving]
  - Renal disorder [Not Recovered/Not Resolved]
  - Skin reaction [Unknown]
  - Death [Fatal]
  - Red blood cell count decreased [Not Recovered/Not Resolved]
  - Adverse drug reaction [Unknown]
  - Functional gastrointestinal disorder [Recovered/Resolved]
  - Rash [Recovering/Resolving]

NARRATIVE: CASE EVENT DATE: 20150327
